FAERS Safety Report 4341876-6 (Version None)
Quarter: 2004Q2

REPORT INFORMATION
  Report Type: 
  Country: None (occurrence: None)
  Receive Date: 20040415
  Receipt Date: 20040330
  Transmission Date: 20050107
  Serious: Yes (Hospitalization, Other)
  Sender: FDA-Public Use
  Company Number: USA040363653

PATIENT
  Sex: Female

DRUGS (8)
  1. HUMULIN N [Suspect]
     Indication: DIABETES MELLITUS
     Dosage: 20 U/1 IN THE MORNING
  2. ILETIN- BEEF/PORTK NPH INSULIN (INSULIN, NAIMAL) [Suspect]
     Indication: DIABETES MELLITUS
     Dosage: 20 U  MG
  3. CELLCEPT [Concomitant]
  4. PROGRAF [Suspect]
  5. PLAVIX [Concomitant]
  6. TOPROL XL (METROPROLOL SUCCINATE) [Concomitant]
  7. ASPIRIN [Concomitant]
  8. SINEMET [Concomitant]

REACTIONS (8)
  - CEREBROVASCULAR ACCIDENT [None]
  - INJECTION SITE HAEMORRHAGE [None]
  - INJECTION SITE MASS [None]
  - INJECTION SITE SWELLING [None]
  - MYOCARDIAL INFARCTION [None]
  - NAUSEA [None]
  - PANCREAS TRANSPLANT [None]
  - RENAL TRANSPLANT [None]
